FAERS Safety Report 6918247-9 (Version None)
Quarter: 2010Q3

REPORT INFORMATION
  Report Type: 
  Country: None (occurrence: None)
  Receive Date: 20100811
  Receipt Date: 20100730
  Transmission Date: 20110219
  Serious: Yes (Other)
  Sender: FDA-Public Use
  Company Number: US-SHIRE-ALL1-2010-04090

PATIENT

DRUGS (10)
  1. FOSRENOL [Suspect]
     Indication: HYPERPHOSPHATAEMIA
     Dosage: 1000 MG, OTHER (WITH MEALS AND SNACKS)
     Route: 048
     Dates: start: 20100524, end: 20100701
  2. NEPHROCAPS [Concomitant]
     Indication: NEPHROPATHY
     Dosage: UNK, 1X/DAY:QD (ONE CAPSULE)
     Route: 048
     Dates: start: 20090801
  3. SOMA [Concomitant]
     Indication: MUSCLE RELAXANT THERAPY
     Dosage: UNK, AS REQ'D (ONE TABLET)
     Route: 048
     Dates: start: 20091001
  4. PERCOCET [Concomitant]
     Indication: NEURALGIA
     Dosage: UNK, AS REQ'D (ONE TABLET)
     Route: 048
     Dates: start: 20091001
  5. NEURONTIN [Concomitant]
     Indication: NEUROPATHY PERIPHERAL
     Dosage: 600 MG, 3X/DAY:TID
     Route: 048
     Dates: start: 20091001
  6. TUMS                               /00108001/ [Concomitant]
     Indication: HYPERPHOSPHATAEMIA
     Dosage: UNK, OTHER (5 TABLETS WITH MEALS)
     Route: 048
     Dates: start: 20091001
  7. SENSIPAR [Concomitant]
     Indication: NEPHROPATHY
     Dosage: 60 MG, 1X/DAY:QD
     Route: 048
     Dates: start: 20091201
  8. HECTOROL [Concomitant]
     Indication: BLOOD CALCIUM DECREASED
     Dosage: 2.5 UG, 1X/DAY:QD
     Route: 048
     Dates: start: 20100101
  9. PAXIL [Concomitant]
     Indication: DEPRESSION
     Dosage: 10 MG, 1X/DAY:QD
     Route: 048
     Dates: start: 20100101
  10. UNSPECIFIED BLOOD PRESSURE MEDICATIONS [Concomitant]
     Indication: BLOOD PRESSURE
     Dosage: UNK, UNKNOWN
     Route: 065
     Dates: end: 20100601

REACTIONS (4)
  - CONSTIPATION [None]
  - DIZZINESS POSTURAL [None]
  - HEADACHE [None]
  - HYPOTENSION [None]
